FAERS Safety Report 9472392 (Version 1)
Quarter: 2013Q3

REPORT INFORMATION
  Report Type: Spontaneous
  Country: US (occurrence: US)
  Receive Date: 20130823
  Receipt Date: 20130823
  Transmission Date: 20140515
  Serious: Yes (Hospitalization, Other)
  Sender: FDA-Public Use
  Company Number: US-PFIZER INC-2013241782

PATIENT
  Age: 57 Year
  Sex: Male
  Weight: 76.64 kg

DRUGS (14)
  1. DILANTIN [Suspect]
     Dosage: 700MG/DAY (300MG IN A.M., 400MG IN P.M.)
  2. SPIRONOLACTONE [Concomitant]
     Dosage: 100 MG DAILY
  3. FUROSEMIDE [Concomitant]
     Dosage: 40 MG, 1X/DAY
  4. LISINOPRIL [Concomitant]
     Dosage: 5 MG DAILY
  5. OXYCODONE HYDROCHLORIDE [Concomitant]
     Dosage: 10 MG, 4X/DAY (AS NEEDED)
  6. MAG-OX [Concomitant]
     Dosage: 400 MG DAILY
  7. PROPRANOLOL HYDROCHLORIDE [Concomitant]
     Dosage: 40 MG, 2X/DAY
  8. LACTULOSE [Concomitant]
     Dosage: 45 ML DAILY
  9. GABAPENTIN [Concomitant]
     Dosage: 300 MG, 3X/DAY
  10. METFORMIN HYDROCHLORIDE [Concomitant]
     Dosage: 500 MG, 2X/DAY
  11. PLAVIX [Concomitant]
     Dosage: 75 MG, 1X/DAY
  12. ZOCOR [Concomitant]
     Dosage: INITIAL STARTING DOSE 10 MG
  13. ZOCOR [Concomitant]
     Dosage: 40 MG, 1X/DAY (BEFORE BED)
  14. ASPIRIN EC [Concomitant]
     Dosage: 81 MG, 1X/DAY

REACTIONS (8)
  - Ascites [Unknown]
  - Portal hypertension [Unknown]
  - Cerebrovascular accident [Unknown]
  - Learning disorder [Unknown]
  - Back pain [Unknown]
  - Speech disorder [Unknown]
  - Gait disturbance [Unknown]
  - Activities of daily living impaired [Unknown]
